FAERS Safety Report 6906435-7 (Version None)
Quarter: 2010Q3

REPORT INFORMATION
  Report Type: 
  Country: None (occurrence: None)
  Receive Date: 20100804
  Receipt Date: 20100803
  Transmission Date: 20110219
  Serious: Yes (Hospitalization)
  Sender: FDA-Public Use
  Company Number: B0667604A

PATIENT
  Sex: Male

DRUGS (11)
  1. ARIXTRA [Suspect]
     Indication: THROMBOSIS PROPHYLAXIS
     Dosage: 2.5MG PER DAY
     Route: 058
     Dates: start: 20100525, end: 20100623
  2. PLAVIX [Suspect]
     Indication: PRODUCT USED FOR UNKNOWN INDICATION
     Dosage: 75MG PER DAY
     Route: 048
  3. ZYLORIC [Concomitant]
     Route: 065
  4. PYOSTACINE [Concomitant]
     Dosage: 1000MG PER DAY
     Route: 065
     Dates: start: 20100614
  5. LASIX [Concomitant]
     Dosage: 40MG PER DAY
     Route: 065
  6. AERIUS [Concomitant]
     Route: 065
     Dates: end: 20100628
  7. SPECIAFOLDINE [Concomitant]
     Route: 065
  8. LIPANTHYL [Concomitant]
     Route: 065
  9. NEXIUM [Concomitant]
     Route: 065
  10. EFFERALGAN CODEINE [Concomitant]
     Route: 065
     Dates: start: 20100501
  11. TRAVATAN [Concomitant]
     Route: 065

REACTIONS (3)
  - ECCHYMOSIS [None]
  - OEDEMA PERIPHERAL [None]
  - TRAUMATIC HAEMATOMA [None]
